APPROVED DRUG PRODUCT: DESMOPRESSIN ACETATE
Active Ingredient: DESMOPRESSIN ACETATE
Strength: 0.1MG
Dosage Form/Route: TABLET;ORAL
Application: N021795 | Product #001
Applicant: FERRING PHARMACEUTICALS INC
Approved: May 8, 2008 | RLD: No | RS: No | Type: DISCN